FAERS Safety Report 8140202-4 (Version None)
Quarter: 2012Q1

REPORT INFORMATION
  Report Type: 
  Country: None (occurrence: None)
  Receive Date: 20120216
  Receipt Date: 20120206
  Transmission Date: 20120608
  Serious: No
  Sender: FDA-Public Use
  Company Number: US-BIOGENIDEC-2012BI004849

PATIENT
  Age: 50 Year
  Sex: Female

DRUGS (4)
  1. AVONEX [Concomitant]
     Route: 030
     Dates: start: 20061001
  2. TYSABRI [Suspect]
     Indication: MULTIPLE SCLEROSIS
     Route: 042
     Dates: start: 20061016, end: 20100212
  3. AVONEX [Concomitant]
     Indication: MULTIPLE SCLEROSIS
     Route: 030
     Dates: start: 20020128
  4. TYSABRI [Suspect]
     Route: 042
     Dates: start: 20110117

REACTIONS (6)
  - IRRITABILITY [None]
  - FATIGUE [None]
  - MULTIPLE SCLEROSIS [None]
  - DIZZINESS [None]
  - BALANCE DISORDER [None]
  - MUSCULAR WEAKNESS [None]
